FAERS Safety Report 17099476 (Version 3)
Quarter: 2020Q1

REPORT INFORMATION
  Report Type: Spontaneous
  Country: US (occurrence: US)
  Receive Date: 20191202
  Receipt Date: 20200127
  Transmission Date: 20200409
  Serious: Yes (Hospitalization)
  Sender: FDA-Public Use
  Company Number: US-PFIZER INC-2019515799

PATIENT
  Age: 2 Year
  Sex: Male
  Weight: 14.2 kg

DRUGS (2)
  1. BICILLIN L-A [Suspect]
     Active Substance: PENICILLIN G BENZATHINE
     Indication: PHARYNGITIS
  2. BICILLIN L-A [Suspect]
     Active Substance: PENICILLIN G BENZATHINE
     Indication: STREPTOCOCCAL INFECTION
     Dosage: 6 MILLION IU, SINGLE
     Route: 030
     Dates: start: 20191112, end: 20191112

REACTIONS (1)
  - Pyomyositis [Recovered/Resolved]

NARRATIVE: CASE EVENT DATE: 20191113
